FAERS Safety Report 7667996-6 (Version None)
Quarter: 2011Q3

REPORT INFORMATION
  Report Type: 
  Country: None (occurrence: None)
  Receive Date: 20110808
  Receipt Date: 20110801
  Transmission Date: 20111222
  Serious: Yes (Life-Threatening, Hospitalization)
  Sender: FDA-Public Use
  Company Number: DE-PFIZER INC-2011124912

PATIENT
  Age: 66 Year
  Sex: Male

DRUGS (3)
  1. NONACOG ALFA [Suspect]
     Indication: FACTOR IX DEFICIENCY
     Dosage: 1500 IU, ALTERNATE DAY
     Route: 042
     Dates: start: 20060101, end: 20100101
  2. NONACOG ALFA [Suspect]
     Dosage: 2000 IU, 2X/DAY
     Route: 042
  3. NONACOG ALFA [Suspect]
     Dosage: 1500 IU, 3X/DAY
     Route: 042
     Dates: start: 20100501, end: 20100601

REACTIONS (1)
  - INFUSION RELATED REACTION [None]
